FAERS Safety Report 8406373-7 (Version None)
Quarter: 2012Q2

REPORT INFORMATION
  Report Type: 
  Country: None (occurrence: None)
  Receive Date: 20120529
  Receipt Date: 20100121
  Transmission Date: 20120825
  Serious: Yes (Other)
  Sender: FDA-Public Use
  Company Number: JP-2012-12102

PATIENT
  Sex: Female

DRUGS (3)
  1. ASPIRIN [Suspect]
  2. PLETAL [Suspect]
  3. BAYASPIRIN (ACETYSALICYCLIC ACID) [Concomitant]

REACTIONS (2)
  - HYPERTHYROIDISM [None]
  - HEART RATE INCREASED [None]
